FAERS Safety Report 7037489-8 (Version None)
Quarter: 2010Q4

REPORT INFORMATION
  Report Type: 
  Country: None (occurrence: None)
  Receive Date: 20101011
  Receipt Date: 20101006
  Transmission Date: 20110411
  Serious: Yes (Other)
  Sender: FDA-Public Use
  Company Number: A0885232A

PATIENT
  Age: 42 Year
  Sex: Female

DRUGS (5)
  1. WELLBUTRIN SR [Suspect]
     Indication: DEPRESSION
     Route: 048
     Dates: start: 20020101, end: 20050101
  2. LAMICTAL [Suspect]
     Indication: BIPOLAR DISORDER
     Route: 048
     Dates: start: 20050101, end: 20090201
  3. FLOVENT [Concomitant]
  4. ADVAIR DISKUS 100/50 [Concomitant]
  5. TRAZODONE HCL [Concomitant]

REACTIONS (11)
  - AGGRESSION [None]
  - BONE PAIN [None]
  - FEELING ABNORMAL [None]
  - FEELING OF DESPAIR [None]
  - INCREASED TENDENCY TO BRUISE [None]
  - INFLUENZA [None]
  - MOOD ALTERED [None]
  - MYALGIA [None]
  - PAIN [None]
  - SOLILOQUY [None]
  - THINKING ABNORMAL [None]
